FAERS Safety Report 8449743-3 (Version None)
Quarter: 2012Q2

REPORT INFORMATION
  Report Type: 
  Country: None (occurrence: None)
  Receive Date: 20120620
  Receipt Date: 20120613
  Transmission Date: 20120825
  Serious: Yes (Hospitalization, Other)
  Sender: FDA-Public Use
  Company Number: BR-BAYER-2012-059060

PATIENT
  Age: 30 Year
  Sex: Female
  Weight: 60 kg

DRUGS (2)
  1. MIRENA [Suspect]
     Indication: UTERINE LEIOMYOMA
     Dosage: 20 ?G/D, CONT
     Route: 015
     Dates: start: 20020601, end: 20060424
  2. HOMEOPATIC PREPARATION [Concomitant]
     Dosage: UNK
     Route: 048
     Dates: start: 20060101, end: 20070101

REACTIONS (6)
  - MALAISE [None]
  - PREGNANCY WITH CONTRACEPTIVE DEVICE [None]
  - AMENORRHOEA [None]
  - CAESAREAN SECTION [None]
  - PREMATURE SEPARATION OF PLACENTA [None]
  - PROCEDURAL PAIN [None]
